FAERS Safety Report 14381924 (Version 1)
Quarter: 2018Q1

REPORT INFORMATION
  Report Type: Spontaneous
  Country: US (occurrence: US)
  Receive Date: 20180111
  Receipt Date: 20180111
  Transmission Date: 20180509
  Serious: Yes (Hospitalization)
  Sender: FDA-Public Use
  Company Number: None

PATIENT
  Age: 41 Year
  Sex: Female
  Weight: 46.8 kg

DRUGS (1)
  1. PEMBROLIZUMAB. [Suspect]
     Active Substance: PEMBROLIZUMAB
     Indication: BREAST CANCER
     Dosage: ?          OTHER FREQUENCY:Q3W;?
     Route: 042
     Dates: start: 20171127, end: 20171219

REACTIONS (1)
  - Sepsis [None]

NARRATIVE: CASE EVENT DATE: 20180107
